FAERS Safety Report 9097489 (Version 1)
Quarter: 2013Q1

REPORT INFORMATION
  Report Type: Report from Study
  Country: US (occurrence: US)
  Receive Date: 20130212
  Receipt Date: 20130212
  Transmission Date: 20140127
  Serious: Yes (Hospitalization, Other)
  Sender: FDA-Public Use
  Company Number: US-JNJFOC-20130203643

PATIENT
  Sex: 0

DRUGS (2)
  1. REMICADE [Suspect]
     Indication: CROHN^S DISEASE
     Route: 042
  2. REMICADE [Suspect]
     Indication: CROHN^S DISEASE
     Route: 042

REACTIONS (8)
  - Heart rate decreased [Unknown]
  - Cardiac discomfort [Unknown]
  - Blood pressure decreased [Unknown]
  - Urticaria [Unknown]
  - Pruritus [Unknown]
  - Formication [Unknown]
  - Infusion related reaction [Unknown]
  - Hospitalisation [Unknown]
